FAERS Safety Report 11833074 (Version 2)
Quarter: 2016Q1

REPORT INFORMATION
  Report Type: Spontaneous
  Country: FR (occurrence: FR)
  Receive Date: 20151214
  Receipt Date: 20160114
  Transmission Date: 20160525
  Serious: Yes (Death, Other)
  Sender: FDA-Public Use
  Company Number: FR-ALEXION PHARMACEUTICALS INC-A201300479

PATIENT
  Age: 70 Year
  Sex: Female
  Weight: 48 kg

DRUGS (2)
  1. SOLIRIS [Suspect]
     Active Substance: ECULIZUMAB
     Indication: PAROXYSMAL NOCTURNAL HAEMOGLOBINURIA
     Dosage: UNK
     Route: 042
     Dates: start: 2007
  2. SOLIRIS [Suspect]
     Active Substance: ECULIZUMAB
     Dosage: 900 MG, Q15D
     Route: 042

REACTIONS (8)
  - Product preparation error [Unknown]
  - Asthenia [Unknown]
  - Sepsis [Unknown]
  - Cauda equina syndrome [Unknown]
  - Septic shock [Unknown]
  - Post procedural complication [Unknown]
  - Death [Fatal]
  - Femur fracture [Unknown]

NARRATIVE: CASE EVENT DATE: 20151109
